FAERS Safety Report 6650267-4 (Version None)
Quarter: 2010Q1

REPORT INFORMATION
  Report Type: 
  Country: None (occurrence: None)
  Receive Date: 20100325
  Receipt Date: 20100316
  Transmission Date: 20100710
  Serious: Yes (Other)
  Sender: FDA-Public Use
  Company Number: NL-NOVOPROD-303343

PATIENT
  Sex: Male
  Weight: 48 kg

DRUGS (1)
  1. NORDITROPIN [Suspect]
     Indication: NOONAN SYNDROME
     Dosage: 2 MG, QD
     Dates: start: 20010301, end: 20091016

REACTIONS (2)
  - CONDITION AGGRAVATED [None]
  - EPILEPSY [None]
